FAERS Safety Report 7222484-6 (Version None)
Quarter: 2011Q1

REPORT INFORMATION
  Report Type: 
  Country: None (occurrence: None)
  Receive Date: 20110104
  Receipt Date: 20101223
  Transmission Date: 20110831
  Serious: Yes (Death, Hospitalization, Other)
  Sender: FDA-Public Use
  Company Number: 2010AP002642

PATIENT
  Age: 33 Year
  Sex: Female

DRUGS (3)
  1. PROPOFOL [Suspect]
  2. ATORVASTATIN (ATORVASTATIN) [Suspect]
     Dosage: 100 MG;
  3. COLCHICINE [Suspect]
     Dosage: 20 MG;

REACTIONS (18)
  - PANCYTOPENIA [None]
  - CONVULSION [None]
  - DRUG INTERACTION [None]
  - SEPSIS [None]
  - ACUTE LUNG INJURY [None]
  - RHABDOMYOLYSIS [None]
  - HYPERTRIGLYCERIDAEMIA [None]
  - SHOCK HAEMORRHAGIC [None]
  - RENAL FAILURE ACUTE [None]
  - HYPERAMMONAEMIC ENCEPHALOPATHY [None]
  - OVERDOSE [None]
  - HEPATIC FAILURE [None]
  - ENTEROCOLITIS [None]
  - BRAIN OEDEMA [None]
  - PLATELET COUNT INCREASED [None]
  - PULMONARY ALVEOLAR HAEMORRHAGE [None]
  - CARDIAC ARREST [None]
  - CONTINUOUS HAEMODIAFILTRATION [None]
